FAERS Safety Report 7347944-9 (Version None)
Quarter: 2011Q1

REPORT INFORMATION
  Report Type: 
  Country: None (occurrence: None)
  Receive Date: 20110311
  Receipt Date: 20110303
  Transmission Date: 20110831
  Serious: Yes (Other)
  Sender: FDA-Public Use
  Company Number: US-BAYER-2011-020088

PATIENT
  Sex: Female

DRUGS (2)
  1. YASMIN [Suspect]
  2. ETHINYL ESTRADIOL [Suspect]

REACTIONS (2)
  - PAIN [None]
  - CHOLECYSTECTOMY [None]
